FAERS Safety Report 4598963-7 (Version None)
Quarter: 2005Q1

REPORT INFORMATION
  Report Type: 
  Country: None (occurrence: None)
  Receive Date: 20050302
  Receipt Date: 20050224
  Transmission Date: 20050727
  Serious: Yes (Death, Other)
  Sender: FDA-Public Use
  Company Number: 2005-02-1521

PATIENT
  Age: 47 Year
  Sex: Male

DRUGS (3)
  1. REBETOL [Suspect]
     Indication: HEPATITIS C
     Dosage: 800 MG QD ORAL
     Route: 048
     Dates: start: 20000201, end: 20000301
  2. INTRON A [Suspect]
     Indication: HEPATITIS C
     Dosage: 3 MU QD
     Dates: start: 20000201, end: 20000301
  3. FIORINAL W/CODEINE [Concomitant]

REACTIONS (7)
  - ASTHENIA [None]
  - COMPLETED SUICIDE [None]
  - FEELING ABNORMAL [None]
  - GUN SHOT WOUND [None]
  - HEAD INJURY [None]
  - MIGRAINE [None]
  - TREATMENT NONCOMPLIANCE [None]
